FAERS Safety Report 10042604 (Version 1)
Quarter: 2014Q1

REPORT INFORMATION
  Report Type: Spontaneous
  Country: BR (occurrence: BR)
  Receive Date: 20140327
  Receipt Date: 20140327
  Transmission Date: 20141002
  Serious: Yes (Other)
  Sender: FDA-Public Use
  Company Number: BR-PFIZER INC-2014082795

PATIENT
  Age: 69 Year
  Sex: Female
  Weight: 56 kg

DRUGS (4)
  1. XALATAN [Suspect]
     Indication: ANGLE CLOSURE GLAUCOMA
     Dosage: 3 UG (1 DROP IN BOTH EYES), 2X/DAY
     Route: 047
  2. XALATAN [Suspect]
     Indication: GLAUCOMA
  3. HYLO COMOD [Concomitant]
     Indication: EYE LUBRICATION THERAPY
     Dosage: 1 DROP IN BOTH EYES (UNSPECIFIED DOSE), 3X/DAY
     Dates: start: 201312
  4. LIPLESS [Concomitant]
     Indication: BLOOD TRIGLYCERIDES INCREASED
     Dosage: UNK
     Dates: start: 20131002, end: 20131230

REACTIONS (5)
  - Diabetes mellitus [Not Recovered/Not Resolved]
  - Incorrect dose administered [Not Recovered/Not Resolved]
  - Eye irritation [Unknown]
  - Ocular hyperaemia [Unknown]
  - Eye disorder [Unknown]
